FAERS Safety Report 10077482 (Version 1)
Quarter: 2014Q2

REPORT INFORMATION
  Report Type: Spontaneous
  Country: US (occurrence: US)
  Receive Date: 20140414
  Receipt Date: 20140414
  Transmission Date: 20141212
  Serious: No
  Sender: FDA-Public Use
  Company Number: US-BANPHARM-20131662

PATIENT
  Age: 58 Year
  Sex: Male
  Weight: 108.86 kg

DRUGS (3)
  1. ALEVE LIQUID GELS 220 MG [Suspect]
     Indication: PAIN
     Dosage: 1 DF, BID,
     Route: 048
     Dates: start: 201308
  2. DIOVAN [Concomitant]
  3. VITAMINS GENERIC [Concomitant]

REACTIONS (1)
  - Rash [Not Recovered/Not Resolved]
